FAERS Safety Report 8890063 (Version 1)
Quarter: 2012Q4

REPORT INFORMATION
  Report Type: 
  Country: IT (occurrence: IT)
  Receive Date: 20121107
  Receipt Date: 20121107
  Transmission Date: 20130627
  Serious: Yes (Death)
  Sender: FDA-Public Use
  Company Number: IT-BRISTOL-MYERS SQUIBB COMPANY-17083254

PATIENT
  Age: 89 Year
  Sex: Female

DRUGS (7)
  1. COUMADIN TABS 5 MG [Suspect]
     Route: 048
     Dates: start: 20120101, end: 20120901
  2. ENAPREN [Concomitant]
     Dosage: Enapren tab 20mg
  3. CARVEDILOL [Concomitant]
     Dosage: Carvedilolo tab 25mg
  4. ALLOPURINOL [Concomitant]
     Dosage: Allopurinol tab 300mg
  5. LASIX [Concomitant]
     Dosage: tabs
  6. VENITRIN [Concomitant]
     Dosage: Formulation-Venitrin transdermal patches
     Route: 062
  7. LANOXIN [Concomitant]
     Dosage: Lanoxin tab 0.125mg

REACTIONS (2)
  - Cerebral haemorrhage [Fatal]
  - Injury [Fatal]
